FAERS Safety Report 24536122 (Version 2)
Quarter: 2024Q4

REPORT INFORMATION
  Report Type: Report from Study
  Country: US (occurrence: US)
  Receive Date: 20241022
  Receipt Date: 20241230
  Transmission Date: 20250115
  Serious: Yes (Other)
  Sender: JAZZ
  Company Number: US-JAZZ PHARMACEUTICALS-2024-US-016966

PATIENT
  Age: 41 Year
  Sex: Female

DRUGS (10)
  1. XYWAV [Suspect]
     Active Substance: CALCIUM OXYBATE\MAGNESIUM OXYBATE\POTASSIUM OXYBATE\SODIUM OXYBATE
     Indication: Narcolepsy
     Dosage: UNK
  2. XYWAV [Suspect]
     Active Substance: CALCIUM OXYBATE\MAGNESIUM OXYBATE\POTASSIUM OXYBATE\SODIUM OXYBATE
     Indication: Cataplexy
  3. XYWAV [Suspect]
     Active Substance: CALCIUM OXYBATE\MAGNESIUM OXYBATE\POTASSIUM OXYBATE\SODIUM OXYBATE
     Indication: Somnolence
  4. BUPROPION HYDROCHLORIDE [Concomitant]
     Active Substance: BUPROPION HYDROCHLORIDE
     Indication: Product used for unknown indication
     Dosage: UNK
     Dates: start: 20230403
  5. GABAPENTIN [Concomitant]
     Active Substance: GABAPENTIN
     Indication: Anxiety
     Dosage: UNK
     Dates: start: 20240925
  6. VYVANSE [Concomitant]
     Active Substance: LISDEXAMFETAMINE DIMESYLATE
     Indication: Product used for unknown indication
     Dosage: UNK
     Dates: start: 20240802
  7. VALIUM [Concomitant]
     Active Substance: DIAZEPAM
     Indication: Product used for unknown indication
     Dosage: UNK
     Dates: start: 20241002
  8. ASTEPRO [Concomitant]
     Active Substance: AZELASTINE HYDROCHLORIDE
     Indication: Product used for unknown indication
     Dosage: UNK
     Dates: start: 20241016
  9. BROMPHEN [BROMPHENIRAMINE MALEATE] [Concomitant]
     Indication: Product used for unknown indication
     Dosage: UNK (2-30-10 MG/5ML)
     Dates: start: 20241016
  10. COLACE [Concomitant]
     Active Substance: DOCUSATE SODIUM
     Indication: Product used for unknown indication
     Dosage: UNK

REACTIONS (3)
  - Breast cancer [Unknown]
  - Surgery [Unknown]
  - Illness [Unknown]

NARRATIVE: CASE EVENT DATE: 20240924
